FAERS Safety Report 14786701 (Version 2)
Quarter: 2019Q4

REPORT INFORMATION
  Report Type: Spontaneous
  Country: RU (occurrence: RU)
  Receive Date: 20180420
  Receipt Date: 20191020
  Transmission Date: 20200122
  Serious: Yes (Other)
  Sender: FDA-Public Use
  Company Number: RU-009507513-1804RUS006178

PATIENT
  Age: 27 Year
  Sex: Male

DRUGS (2)
  1. DABRAFENIB MESYLATE (+) TRAMETINIB DIMETHYL SULFOXIDE [Suspect]
     Active Substance: DABRAFENIB\TRAMETINIB
     Indication: NEOPLASM MALIGNANT
     Dosage: UNK
  2. TEMODAL [Suspect]
     Active Substance: TEMOZOLOMIDE
     Indication: CEREBRAL DISORDER
     Dosage: UNK
     Dates: start: 20180125, end: 20180214

REACTIONS (3)
  - Hepatic failure [Unknown]
  - Metastases to lung [Unknown]
  - Metastases to spinal cord [Unknown]

NARRATIVE: CASE EVENT DATE: 2018
